FAERS Safety Report 4445862-7 (Version None)
Quarter: 2004Q3

REPORT INFORMATION
  Report Type: 
  Country: None (occurrence: None)
  Receive Date: 20040907
  Receipt Date: 20040831
  Transmission Date: 20050211
  Serious: Yes (Life-Threatening)
  Sender: FDA-Public Use
  Company Number: 2004-119812-NL

PATIENT
  Age: 43 Year
  Sex: Female

DRUGS (3)
  1. MIRTAZAPINE [Suspect]
     Indication: DEPRESSION
     Dosage: 30 MG/15 MG ORAL
     Route: 048
     Dates: start: 20040730, end: 20040803
  2. MIRTAZAPINE [Suspect]
     Indication: DEPRESSION
     Dosage: 30 MG/15 MG ORAL
     Route: 048
     Dates: start: 20040803, end: 20040805
  3. RISPERIDONE [Concomitant]

REACTIONS (1)
  - ANAPHYLACTIC REACTION [None]
